FAERS Safety Report 14587541 (Version 1)
Quarter: 2018Q1

REPORT INFORMATION
  Report Type: Spontaneous
  Country: IT (occurrence: IT)
  Receive Date: 20180301
  Receipt Date: 20180301
  Transmission Date: 20180509
  Serious: Yes (Hospitalization, Other)
  Sender: FDA-Public Use
  Company Number: IT-CELGENEUS-ITA-2016097200

PATIENT
  Age: 61 Year
  Sex: Female

DRUGS (4)
  1. BORTEZOMIB [Concomitant]
     Active Substance: BORTEZOMIB
     Indication: PLASMA CELL MYELOMA
     Route: 065
     Dates: start: 201506
  2. TRAMADOL. [Concomitant]
     Active Substance: TRAMADOL
     Indication: PAIN
     Route: 065
     Dates: start: 201506
  3. THALIDOMIDE CELGENE [Suspect]
     Active Substance: THALIDOMIDE
     Indication: PLASMA CELL MYELOMA
     Route: 048
     Dates: start: 201506
  4. DEXAMETHASONE. [Concomitant]
     Active Substance: DEXAMETHASONE
     Indication: PLASMA CELL MYELOMA
     Route: 065
     Dates: start: 201506

REACTIONS (6)
  - Varicella zoster virus infection [Recovered/Resolved]
  - Pancytopenia [Recovered/Resolved]
  - Pyrexia [Recovered/Resolved]
  - Drug interaction [Recovered/Resolved]
  - Pain [Recovering/Resolving]
  - Rash [Recovered/Resolved]
